FAERS Safety Report 18391886 (Version 1)
Quarter: 2020Q4

REPORT INFORMATION
  Report Type: Spontaneous
  Country: JP (occurrence: JP)
  Receive Date: 20201016
  Receipt Date: 20201016
  Transmission Date: 20210114
  Serious: Yes (Hospitalization)
  Sender: FDA-Public Use
  Company Number: JP-CELLTRION-2020-JP-000364

PATIENT
  Age: 45 Year
  Sex: Male

DRUGS (6)
  1. CEFOZOPRAN [Suspect]
     Active Substance: CEFOZOPRAN
     Indication: FEBRILE NEUTROPENIA
  2. CYTOSINE ARABINOSIDE [Suspect]
     Active Substance: CYTARABINE
     Dosage: 100 MG/M2 DAILY FOR SEVEN DAYS
  3. MEROPENEM. [Suspect]
     Active Substance: MEROPENEM
     Indication: ANTIBIOTIC THERAPY
  4. VANCOMYCIN [Suspect]
     Active Substance: VANCOMYCIN
     Indication: ANTIBIOTIC THERAPY
  5. LEVOFLOXACIN (NON-SPECIFIC) [Suspect]
     Active Substance: LEVOFLOXACIN
     Indication: ANTIBIOTIC THERAPY
  6. IDARUBICIN [Suspect]
     Active Substance: IDARUBICIN
     Dosage: 12 MG/M2 FOR THREE DAYS

REACTIONS (1)
  - Haemorrhagic pneumonia [Recovered/Resolved]
